FAERS Safety Report 15539367 (Version 3)
Quarter: 2018Q4

REPORT INFORMATION
  Report Type: Report from Study
  Country: US (occurrence: US)
  Receive Date: 20181022
  Receipt Date: 20181031
  Transmission Date: 20190205
  Serious: Yes (Congenital Anomaly)
  Sender: FDA-Public Use
  Company Number: US-BRISTOL-MYERS SQUIBB COMPANY-BMS-2018-098564

PATIENT
  Sex: Female

DRUGS (3)
  1. TIVICAY [Suspect]
     Active Substance: DOLUTEGRAVIR SODIUM
     Indication: PRODUCT USED FOR UNKNOWN INDICATION
     Dosage: 50 MG, QD
     Route: 064
     Dates: end: 20180720
  2. ATAZANAVIR SULFATE,COBICISTAT [Suspect]
     Active Substance: ATAZANAVIR SULFATE\COBICISTAT
     Indication: PRODUCT USED FOR UNKNOWN INDICATION
     Dosage: 1 DF, QD
     Route: 064
     Dates: start: 20180802, end: 20180913
  3. DESCOVY [Suspect]
     Active Substance: EMTRICITABINE\TENOFOVIR ALAFENAMIDE FUMARATE
     Indication: PRODUCT USED FOR UNKNOWN INDICATION
     Dosage: 1 DF, QD
     Route: 064
     Dates: end: 20180913

REACTIONS (2)
  - Foetal exposure during pregnancy [Unknown]
  - Trisomy 15 [Unknown]
